FAERS Safety Report 22618831 (Version 2)
Quarter: 2023Q2

REPORT INFORMATION
  Report Type: Spontaneous
  Country: US (occurrence: US)
  Receive Date: 20230620
  Receipt Date: 20230630
  Transmission Date: 20230722
  Serious: No
  Sender: FDA-Public Use
  Company Number: US-PFIZER INC-202300167196

PATIENT
  Age: 16 Year
  Sex: Male

DRUGS (3)
  1. GENOTROPIN [Suspect]
     Active Substance: SOMATROPIN
     Indication: Growth retardation
     Dosage: 0.4 MG, DAILY (EVERY DAY; 0.4MG, ADMINISTERED IN LEGS, HINNY, AND BELLY)
     Dates: start: 202203
  2. GENOTROPIN [Suspect]
     Active Substance: SOMATROPIN
     Dosage: UNK
  3. GUANFACINE [Concomitant]
     Active Substance: GUANFACINE
     Indication: Attention deficit hyperactivity disorder
     Dosage: 4 DF, DAILY [ONE 3MG TABLET AT NIGHT; ONE 1MG TABLET IN THE MORNING]

REACTIONS (3)
  - Device difficult to use [Unknown]
  - Poor quality device used [Not Recovered/Not Resolved]
  - Device mechanical issue [Unknown]
